FAERS Safety Report 4955689-5 (Version None)
Quarter: 2006Q1

REPORT INFORMATION
  Report Type: 
  Country: None (occurrence: None)
  Receive Date: 20060328
  Receipt Date: 20050922
  Transmission Date: 20060701
  Serious: Yes (Hospitalization, Disabling)
  Sender: FDA-Public Use
  Company Number: US-MERCK-0509USA03619

PATIENT
  Age: 44 Year
  Sex: Male
  Weight: 91 kg

DRUGS (5)
  1. VIOXX [Suspect]
     Indication: ARTHRITIS
     Route: 048
     Dates: start: 20001116, end: 20040901
  2. OMEPRAZOLE [Concomitant]
     Indication: DYSPEPSIA
     Route: 065
  3. PROZAC [Concomitant]
     Indication: DEPRESSION
     Route: 065
  4. CYCLOBENZAPRINE HYDROCHLORIDE [Concomitant]
     Route: 065
  5. CEPHALEXIN [Concomitant]
     Route: 065

REACTIONS (14)
  - ACUTE MYOCARDIAL INFARCTION [None]
  - BACK DISORDER [None]
  - BRONCHITIS [None]
  - CORONARY ARTERY DISEASE [None]
  - DEPRESSION [None]
  - GASTROOESOPHAGEAL REFLUX DISEASE [None]
  - HYPERLIPIDAEMIA [None]
  - HYPERTENSION [None]
  - MYOCARDIAL INFARCTION [None]
  - OTITIS MEDIA [None]
  - PAIN IN EXTREMITY [None]
  - PEPTIC ULCER [None]
  - REFLUX OESOPHAGITIS [None]
  - SINUSITIS [None]
